FAERS Safety Report 6194809-4 (Version None)
Quarter: 2009Q2

REPORT INFORMATION
  Report Type: 
  Country: None (occurrence: None)
  Receive Date: 20090519
  Receipt Date: 20080505
  Transmission Date: 20091009
  Serious: No
  Sender: FDA-Public Use
  Company Number: US-TYCO HEALTHCARE/MALLINCKRODT-T200800782

PATIENT

DRUGS (5)
  1. METHADONE [Suspect]
     Indication: TEMPOROMANDIBULAR JOINT SYNDROME
     Dosage: 10 MG, 3-4 TIMES PER DAY
     Route: 048
  2. PAXIL [Concomitant]
     Dosage: UNK, QD
     Route: 048
  3. ZANAFLEX [Concomitant]
     Dosage: UNK, QD
     Route: 048
  4. ENALAPRIL [Concomitant]
     Dosage: UNK, QD
     Route: 048
  5. IMIPRAMINE [Concomitant]
     Dosage: UNK, QD
     Route: 048

REACTIONS (7)
  - BLOOD PRESSURE INCREASED [None]
  - DRUG INEFFECTIVE [None]
  - ERYTHEMA [None]
  - FEELING ABNORMAL [None]
  - FEELING JITTERY [None]
  - INSOMNIA [None]
  - MOOD ALTERED [None]
